FAERS Safety Report 8186556-4 (Version None)
Quarter: 2012Q1

REPORT INFORMATION
  Report Type: 
  Country: None (occurrence: None)
  Receive Date: 20120306
  Receipt Date: 20120227
  Transmission Date: 20120608
  Serious: Yes (Hospitalization)
  Sender: FDA-Public Use
  Company Number: US-US-EMD SERONO, INC.-7115904

PATIENT
  Sex: Female

DRUGS (4)
  1. BENICAR [Concomitant]
     Indication: HYPERTENSION
  2. REBIF [Suspect]
     Indication: MULTIPLE SCLEROSIS
     Route: 058
     Dates: start: 20081027
  3. BENICAR HCT [Concomitant]
     Indication: HYPERTENSION
  4. LISINOPRIL [Concomitant]
     Indication: HYPERTENSION

REACTIONS (5)
  - OPTIC NEURITIS [None]
  - INJECTION SITE MASS [None]
  - NASOPHARYNGITIS [None]
  - MULTIPLE SCLEROSIS [None]
  - INJECTION SITE HAEMATOMA [None]
